FAERS Safety Report 5007343-1 (Version None)
Quarter: 2006Q2

REPORT INFORMATION
  Report Type: 
  Country: None (occurrence: None)
  Receive Date: 20060519
  Receipt Date: 20060519
  Transmission Date: 20061013
  Serious: Yes (Death, Life-Threatening)
  Sender: FDA-Public Use
  Company Number: None

PATIENT
  Age: 25 Year
  Sex: Female
  Weight: 54.1 kg

DRUGS (1)
  1. PROGRAF [Suspect]
     Indication: LUNG TRANSPLANT
     Dosage: 2 MG BID PO
     Route: 048
     Dates: start: 20040301, end: 20060205

REACTIONS (24)
  - ACIDOSIS [None]
  - AGITATION [None]
  - ANAEMIA [None]
  - BRAIN NATRIURETIC PEPTIDE INCREASED [None]
  - BRAIN OEDEMA [None]
  - CONFUSIONAL STATE [None]
  - COUGH [None]
  - ELECTROENCEPHALOGRAM ABNORMAL [None]
  - HYPERGLYCAEMIA [None]
  - IMMUNOSUPPRESSANT DRUG LEVEL INCREASED [None]
  - INFLUENZA [None]
  - LETHARGY [None]
  - LOSS OF CONSCIOUSNESS [None]
  - NAUSEA [None]
  - OEDEMA PERIPHERAL [None]
  - PCO2 INCREASED [None]
  - PLEURAL EFFUSION [None]
  - PULMONARY FUNCTION TEST ABNORMAL [None]
  - PUPIL FIXED [None]
  - PYREXIA [None]
  - RENAL FAILURE ACUTE [None]
  - RESPIRATORY ARREST [None]
  - RESPIRATORY DISTRESS [None]
  - SOMNOLENCE [None]
